FAERS Safety Report 8108220-X (Version None)
Quarter: 2012Q1

REPORT INFORMATION
  Report Type: 
  Country: None (occurrence: None)
  Receive Date: 20120202
  Receipt Date: 20120130
  Transmission Date: 20120608
  Serious: Yes (Other)
  Sender: FDA-Public Use
  Company Number: US-PFIZER INC-2012006348

PATIENT
  Sex: Female
  Weight: 43.991 kg

DRUGS (8)
  1. VITAMIN D [Concomitant]
     Dosage: UNK
  2. CHANTIX [Suspect]
     Dosage: UNK
     Dates: start: 20080101, end: 20081001
  3. FIORICET [Concomitant]
     Indication: HEADACHE
     Dosage: UNK
  4. NEXIUM [Concomitant]
     Indication: GASTROOESOPHAGEAL REFLUX DISEASE
     Dosage: UNK
  5. XANAX [Concomitant]
     Indication: SLEEP DISORDER
  6. XANAX [Concomitant]
     Indication: ANXIETY
     Dosage: UNK
  7. CHANTIX [Suspect]
     Indication: SMOKING CESSATION THERAPY
     Dosage: 0.5 MG, 1X/DAY
     Route: 048
     Dates: start: 20080401, end: 20080101
  8. LIPITOR [Concomitant]
     Indication: BLOOD CHOLESTEROL INCREASED
     Dosage: UNK

REACTIONS (1)
  - LYMPHOPROLIFERATIVE DISORDER [None]
